FAERS Safety Report 5879981-5 (Version None)
Quarter: 2008Q3

REPORT INFORMATION
  Report Type: 
  Country: None (occurrence: None)
  Receive Date: 20080912
  Receipt Date: 20080911
  Transmission Date: 20090109
  Serious: Yes (Hospitalization)
  Sender: FDA-Public Use
  Company Number: US-RB-003961-08

PATIENT
  Sex: Female
  Weight: 58.5 kg

DRUGS (6)
  1. SUBOXONE [Suspect]
     Route: 060
     Dates: start: 20080620, end: 20080701
  2. SUBOXONE [Suspect]
     Route: 060
     Dates: start: 20080701, end: 20080801
  3. SUBOXONE [Suspect]
     Route: 060
     Dates: start: 20080801
  4. LOTREL [Concomitant]
     Indication: HYPERTENSION
     Dosage: 10/20 CAPSULE TAKEN DAILY
     Route: 048
  5. ATENOLOL [Concomitant]
     Indication: HYPERTENSION
     Route: 048
  6. JANUVIA [Concomitant]
     Route: 048
     Dates: start: 20080102

REACTIONS (6)
  - BLOOD PRESSURE INCREASED [None]
  - CARDIOMEGALY [None]
  - FLUID RETENTION [None]
  - HYPOAESTHESIA [None]
  - OEDEMA PERIPHERAL [None]
  - PARAESTHESIA [None]
